FAERS Safety Report 9831842 (Version 2)
Quarter: 2014Q1

REPORT INFORMATION
  Report Type: Spontaneous
  Country: DE (occurrence: DE)
  Receive Date: 20140121
  Receipt Date: 20140131
  Transmission Date: 20141002
  Serious: Yes (Other)
  Sender: FDA-Public Use
  Company Number: DE-BEH-2014040200

PATIENT
  Age: 56 Year
  Sex: Male

DRUGS (17)
  1. PRIVIGEN [Suspect]
     Route: 042
     Dates: start: 20131008, end: 20131008
  2. PRIVIGEN [Suspect]
     Route: 042
     Dates: start: 20131008, end: 20131008
  3. PRIVIGEN [Suspect]
     Route: 042
     Dates: start: 20131008, end: 20131008
  4. PRIVIGEN [Suspect]
     Route: 042
     Dates: start: 20131009, end: 20131009
  5. PRIVIGEN [Suspect]
     Route: 042
     Dates: start: 20131009, end: 20131009
  6. PRIVIGEN [Suspect]
     Route: 042
     Dates: start: 20131009, end: 20131009
  7. PRIVIGEN [Suspect]
     Route: 042
     Dates: start: 20131010, end: 20131010
  8. PRIVIGEN [Suspect]
     Route: 042
     Dates: start: 20131010, end: 20131010
  9. PRIVIGEN [Suspect]
     Route: 042
     Dates: start: 20131010, end: 20131010
  10. PRIVIGEN [Suspect]
     Route: 042
     Dates: start: 20131011, end: 20131011
  11. PRIVIGEN [Suspect]
     Route: 042
     Dates: start: 20131011, end: 20131011
  12. PRIVIGEN [Suspect]
     Route: 042
     Dates: start: 20131011, end: 20131011
  13. PRIVIGEN [Suspect]
     Route: 042
     Dates: start: 20131012, end: 20131012
  14. PRIVIGEN [Suspect]
     Route: 042
     Dates: start: 20131012, end: 20131012
  15. PRIVIGEN [Suspect]
     Route: 042
     Dates: start: 20131012, end: 20131012
  16. PRIVIGEN [Suspect]
     Indication: MILLER FISHER SYNDROME
     Route: 042
     Dates: start: 20131008, end: 20131012
  17. GABAPENTIN [Concomitant]

REACTIONS (5)
  - Pruritus [Recovered/Resolved with Sequelae]
  - Urticaria [Recovered/Resolved with Sequelae]
  - Scab [Recovered/Resolved with Sequelae]
  - Rash maculo-papular [Recovered/Resolved with Sequelae]
  - Flushing [Recovered/Resolved with Sequelae]
